FAERS Safety Report 5136493-4 (Version None)
Quarter: 2006Q4

REPORT INFORMATION
  Report Type: 
  Country: None (occurrence: None)
  Receive Date: 20061020
  Receipt Date: 20061006
  Transmission Date: 20070319
  Serious: Yes (Other)
  Sender: FDA-Public Use
  Company Number: 2006SP003902

PATIENT
  Age: 38 Year
  Sex: Female

DRUGS (2)
  1. CLARINASE [Suspect]
     Indication: SINUSITIS
     Dosage: 1 DF; QD
     Dates: start: 20060921, end: 20060925
  2. AMOKSILAV (AMOXI-CLAVULANIC) [Suspect]
     Indication: DRUG USE FOR UNKNOWN INDICATION

REACTIONS (5)
  - FACE OEDEMA [None]
  - FATIGUE [None]
  - HYPERSENSITIVITY [None]
  - PAIN IN EXTREMITY [None]
  - PRURITUS [None]
